FAERS Safety Report 4581000-8 (Version None)
Quarter: 2005Q1

REPORT INFORMATION
  Report Type: 
  Country: None (occurrence: None)
  Receive Date: 20050214
  Receipt Date: 20040716
  Transmission Date: 20050727
  Serious: No
  Sender: FDA-Public Use
  Company Number: US-GLAXOSMITHKLINE-A0518610A

PATIENT
  Age: 38 Year
  Sex: Female

DRUGS (5)
  1. LAMICTAL [Suspect]
     Indication: BIPOLAR DISORDER
     Dosage: 200MG PER DAY
     Route: 048
  2. SEROQUEL [Concomitant]
     Route: 065
  3. EFFEXOR [Concomitant]
  4. KLONOPIN [Concomitant]
     Route: 065
  5. LORCET-HD [Concomitant]
     Route: 065

REACTIONS (1)
  - AMENORRHOEA [None]
